FAERS Safety Report 24541144 (Version 1)
Quarter: 2024Q4

REPORT INFORMATION
  Report Type: Report from Study
  Country: US (occurrence: US)
  Receive Date: 20241023
  Receipt Date: 20241023
  Transmission Date: 20250114
  Serious: Yes (Hospitalization, Other)
  Sender: ALEXION PHARMACEUTICALS
  Company Number: US-ASTRAZENECA-202410USA007540US

PATIENT

DRUGS (1)
  1. LYNPARZA [Suspect]
     Active Substance: OLAPARIB
     Indication: Ovarian cancer
     Dosage: 200 MILLIGRAM, BID

REACTIONS (8)
  - Hypertension [Unknown]
  - Dyspnoea [Unknown]
  - Dizziness [Unknown]
  - Tinnitus [Unknown]
  - Stress [Unknown]
  - Neuropathy peripheral [Unknown]
  - Spinal pain [Unknown]
  - Intentional dose omission [Unknown]
